FAERS Safety Report 9450340 (Version 1)
Quarter: 2013Q3

REPORT INFORMATION
  Report Type: Spontaneous
  Country: GB (occurrence: None)
  Receive Date: 20130807
  Receipt Date: 20130807
  Transmission Date: 20140515
  Serious: Yes (Other)
  Sender: FDA-Public Use
  Company Number: AUR-APL-2013-06307

PATIENT
  Age: 56 Year
  Sex: Male

DRUGS (1)
  1. LISINOPRIL [Suspect]
     Indication: HYPERTENSION
     Route: 048
     Dates: start: 20120315

REACTIONS (6)
  - Dizziness [None]
  - Cough [None]
  - Hyperaesthesia [None]
  - Raynaud^s phenomenon [None]
  - Lip swelling [None]
  - Swelling face [None]
